FAERS Safety Report 18530479 (Version 4)
Quarter: 2021Q4

REPORT INFORMATION
  Report Type: Report from Study
  Country: US (occurrence: US)
  Receive Date: 20201121
  Receipt Date: 20211110
  Transmission Date: 20220303
  Serious: No
  Sender: FDA-Public Use
  Company Number: NVSC2020US311456

PATIENT
  Sex: Male

DRUGS (2)
  1. ENTRESTO [Suspect]
     Active Substance: SACUBITRIL\VALSARTAN
     Indication: Product used for unknown indication
     Dosage: 1 DF, BID(24.26 MG)
     Route: 048
     Dates: start: 20201109
  2. SPIRONOLACTONE [Suspect]
     Active Substance: SPIRONOLACTONE
     Indication: Product used for unknown indication
     Dosage: UNK
     Route: 065
     Dates: start: 202101

REACTIONS (6)
  - Weight decreased [Unknown]
  - Sleep disorder [Unknown]
  - Fluid retention [Recovering/Resolving]
  - Anaemia [Unknown]
  - Exostosis [Not Recovered/Not Resolved]
  - Pain [Not Recovered/Not Resolved]
